FAERS Safety Report 7931299-2 (Version None)
Quarter: 2011Q4

REPORT INFORMATION
  Report Type: 
  Country: None (occurrence: None)
  Receive Date: 20111121
  Receipt Date: 20111110
  Transmission Date: 20120403
  Serious: Yes (Hospitalization, Other)
  Sender: FDA-Public Use
  Company Number: US-BAYER-201023658NA

PATIENT
  Age: 36 Year
  Sex: Female
  Weight: 88.435 kg

DRUGS (16)
  1. NSAID'S [Concomitant]
     Dosage: UNK UNK, PRN
     Dates: start: 20060101
  2. FLUTICASONE PROPIONATE [Concomitant]
     Dosage: 1 PUFF(S), OM
  3. YAZ [Suspect]
     Indication: CONTRACEPTION
     Dosage: SAMPLES RECEIVED IN MAY-2006 (1 PACKET), QD
     Route: 048
     Dates: start: 20060601, end: 20061015
  4. MUSCLE RELAXANTS [Concomitant]
  5. OPHTHALMOLOGICALS [Concomitant]
     Dosage: 1 DROP RIGHT EYE, QID
  6. AZITHROMYCIN [Concomitant]
     Dosage: 250 MG, UNK
  7. ASCORBIC ACID [Concomitant]
  8. CYCLOBENZAPRINE [Concomitant]
     Indication: MUSCLE RELAXANT THERAPY
     Dosage: 10 MG, BID
  9. AMOXCL [Concomitant]
     Dosage: 500 MG, BID
  10. ANTIBIOTICS [Concomitant]
  11. NAPROXEN [Concomitant]
     Indication: DYSMENORRHOEA
     Dosage: UNK UNK, PRN
     Dates: start: 20060101
  12. ELESTAT [Concomitant]
     Dosage: 1 DROP RIGHT EYE, BID
  13. ZYRTEC-D 12 HOUR [Concomitant]
     Dosage: 1 TAB, BID
  14. ALBUTEROL [Concomitant]
     Dosage: UNK UNK, PRN
  15. HYDROMET [HOMATROPINE METHYLBROMIDE,HYDROCODONE BITARTRATE] [Concomitant]
     Dosage: 1 TSP, QID
  16. TYLENOL (CAPLET) [Concomitant]

REACTIONS (6)
  - BACK PAIN [None]
  - PAIN IN EXTREMITY [None]
  - PULMONARY FIBROSIS [None]
  - MUSCULOSKELETAL CHEST PAIN [None]
  - DEEP VEIN THROMBOSIS [None]
  - PULMONARY EMBOLISM [None]
